FAERS Safety Report 25757198 (Version 1)
Quarter: 2025Q3

REPORT INFORMATION
  Report Type: Report from Study
  Country: US (occurrence: US)
  Receive Date: 20250903
  Receipt Date: 20250903
  Transmission Date: 20251021
  Serious: Yes (Other)
  Sender: ELI LILLY AND COMPANY
  Company Number: US-ELI_LILLY_AND_COMPANY-US202507009848

PATIENT
  Age: 83 Year
  Sex: Male

DRUGS (4)
  1. KISUNLA [Suspect]
     Active Substance: DONANEMAB-AZBT
     Indication: Product used for unknown indication
     Route: 065
     Dates: start: 20250627
  2. KISUNLA [Suspect]
     Active Substance: DONANEMAB-AZBT
     Route: 065
     Dates: start: 20250725
  3. WARFARIN [Suspect]
     Active Substance: WARFARIN
     Indication: Product used for unknown indication
     Route: 065
  4. GALANTAMINE [Concomitant]
     Active Substance: GALANTAMINE
     Indication: Dementia Alzheimer^s type
     Route: 065

REACTIONS (13)
  - Abnormal behaviour [Unknown]
  - Cerebral microhaemorrhage [Unknown]
  - Cerebral haemorrhage [Unknown]
  - Amyloid related imaging abnormalities [Unknown]
  - Heart rate irregular [Unknown]
  - Dizziness [Unknown]
  - Confusional state [Recovering/Resolving]
  - Circadian rhythm sleep disorder [Unknown]
  - Ejection fraction decreased [Unknown]
  - Muscle spasms [Unknown]
  - Fatigue [Unknown]
  - Nausea [Unknown]
  - Headache [Unknown]
